FAERS Safety Report 8366290-8 (Version None)
Quarter: 2012Q2

REPORT INFORMATION
  Report Type: 
  Country: None (occurrence: None)
  Receive Date: 20120517
  Receipt Date: 20120511
  Transmission Date: 20120825
  Serious: Yes (Other)
  Sender: FDA-Public Use
  Company Number: PHHY2012JP041102

PATIENT
  Age: 63 Year
  Sex: Female
  Weight: 39 kg

DRUGS (17)
  1. SUMIFERON [Concomitant]
     Dosage: UNK
  2. ESTAZOLAM [Concomitant]
     Dosage: UNK
     Route: 048
  3. AFINITOR [Concomitant]
     Indication: RENAL CANCER
     Dosage: UNK
     Route: 048
  4. LOXONIN [Concomitant]
     Dosage: UNK
     Route: 048
  5. NEXAVAR [Concomitant]
     Indication: RENAL CANCER
     Dosage: UNK
     Route: 048
  6. MAGNESIUM SULFATE [Concomitant]
     Dosage: UNK
  7. DUROTEP JANSSEN [Concomitant]
     Dosage: UNK
  8. ZOMETA [Suspect]
     Dosage: 4MG (PER ADMINISTRATION)
     Route: 041
     Dates: start: 20110714
  9. GLYCYRON [Concomitant]
     Dosage: UNK
  10. LANSOPRAZOLE [Concomitant]
     Dosage: UNK
  11. SELBEX [Concomitant]
     Dosage: UNK
  12. ZOMETA [Suspect]
     Dosage: 4MG (PER ADMINISTRATION)
     Route: 041
     Dates: start: 20111129
  13. SUTENT [Concomitant]
     Indication: RENAL CANCER
     Dosage: UNK
     Route: 048
  14. ZOMETA [Suspect]
     Indication: METASTASES TO BONE
     Dosage: 4MG (PER ADMINISTRATION)
     Route: 041
     Dates: start: 20110616
  15. ZOMETA [Suspect]
     Dosage: 4MG (PER ADMINISTRATION)
     Route: 041
     Dates: start: 20110811
  16. ADALAT CC [Concomitant]
     Dosage: UNK
     Route: 048
  17. EPINASTINE HYDROCHLORIDE [Concomitant]
     Dosage: UNK
     Route: 048

REACTIONS (10)
  - METASTASES TO SKIN [None]
  - EXPOSED BONE IN JAW [None]
  - OSTEONECROSIS OF JAW [None]
  - NEOPLASM MALIGNANT [None]
  - PRIMARY SEQUESTRUM [None]
  - METASTASES TO LUNG [None]
  - METASTASES TO ADRENALS [None]
  - PERIODONTITIS [None]
  - GINGIVAL BLEEDING [None]
  - NEOPLASM PROGRESSION [None]
